FAERS Safety Report 7242254-2 (Version None)
Quarter: 2011Q1

REPORT INFORMATION
  Report Type: 
  Country: None (occurrence: None)
  Receive Date: 20110124
  Receipt Date: 20110117
  Transmission Date: 20110831
  Serious: Yes (Other)
  Sender: FDA-Public Use
  Company Number: FR-AMGEN-FRASP2010012291

PATIENT
  Age: 50 Year
  Sex: Male
  Weight: 75 kg

DRUGS (7)
  1. ARAVA [Concomitant]
     Dosage: UNK
     Route: 048
  2. NEXIUM [Concomitant]
     Dosage: UNK
     Route: 048
     Dates: end: 20101118
  3. ENBREL [Suspect]
     Dosage: 50 MG, WEEKLY
     Route: 058
     Dates: start: 20101122, end: 20101129
  4. ENBREL [Suspect]
     Indication: PSORIATIC ARTHROPATHY
     Dosage: 50 MG, WEEKLY
     Dates: start: 20101122
  5. ACETAMINOPHEN W/ PROPOXYPHENE HCL [Concomitant]
     Dosage: UNK
  6. BREXIN [Concomitant]
     Dosage: UNK
     Dates: start: 20080101, end: 20101121
  7. BREXIN [Concomitant]
     Dosage: UNK
     Route: 048
     Dates: start: 20080101, end: 20101118

REACTIONS (2)
  - CYTOLYTIC HEPATITIS [None]
  - ARTHRALGIA [None]
